FAERS Safety Report 8544522-0 (Version None)
Quarter: 2012Q3

REPORT INFORMATION
  Report Type: 
  Country: None (occurrence: None)
  Receive Date: 20120727
  Receipt Date: 20120723
  Transmission Date: 20120928
  Serious: Yes (Death, Other)
  Sender: FDA-Public Use
  Company Number: BR-ABBOTT-12P-020-0957298-00

PATIENT
  Sex: Female
  Weight: 43 kg

DRUGS (8)
  1. DIOSMIN+HESPERIDIN+MELILOT+VITAMINS [Concomitant]
     Indication: CARDIOVASCULAR DISORDER
  2. METFORMIN HYDROCHLORIDE [Concomitant]
     Indication: DIABETES MELLITUS
  3. CARVEDILOL [Concomitant]
     Indication: CARDIAC DISORDER
  4. GLYBURIDE [Concomitant]
     Indication: PRODUCT USED FOR UNKNOWN INDICATION
  5. HUMIRA [Suspect]
     Indication: PSORIASIS
     Route: 058
     Dates: start: 20120323, end: 20120416
  6. IRON POLYMALTOSE [Concomitant]
     Indication: ANAEMIA
  7. LOSARTAN POTASSIUM [Concomitant]
     Indication: HYPERTENSION
  8. FUROSEMIDE [Concomitant]
     Indication: MICTURITION DISORDER

REACTIONS (5)
  - BLOOD CHOLESTEROL INCREASED [None]
  - DIABETES MELLITUS [None]
  - ANAEMIA [None]
  - CONDITION AGGRAVATED [None]
  - BLOOD TRIGLYCERIDES INCREASED [None]
